FAERS Safety Report 11952351 (Version 3)
Quarter: 2016Q1

REPORT INFORMATION
  Report Type: Report from Study
  Country: US (occurrence: US)
  Receive Date: 20160126
  Receipt Date: 20160216
  Transmission Date: 20160526
  Serious: Yes (Hospitalization)
  Sender: FDA-Public Use
  Company Number: US-ACTELION-A-US2015-128595

PATIENT
  Age: 71 Year
  Sex: Female

DRUGS (3)
  1. WARFARIN [Concomitant]
     Active Substance: WARFARIN
  2. VELETRI [Suspect]
     Active Substance: EPOPROSTENOL
     Dosage: 7 NG/KG, PER MIN
     Route: 042
     Dates: start: 20151204
  3. VELETRI [Suspect]
     Active Substance: EPOPROSTENOL
     Indication: PULMONARY HYPERTENSION
     Dosage: 6 NG/KG, PER MIN
     Route: 042
     Dates: start: 20151204

REACTIONS (13)
  - Renal disorder [Unknown]
  - Blood pressure fluctuation [Unknown]
  - Ingrowing nail [Unknown]
  - Muscle spasms [Unknown]
  - Weight increased [Unknown]
  - Diarrhoea [Unknown]
  - Dyspnoea [Unknown]
  - Mood altered [Unknown]
  - Swelling [Unknown]
  - International normalised ratio fluctuation [Unknown]
  - Pain in jaw [Unknown]
  - Fluid retention [Unknown]
  - Flatulence [Unknown]
